FAERS Safety Report 17261689 (Version 1)
Quarter: 2020Q1

REPORT INFORMATION
  Report Type: Spontaneous
  Country: US (occurrence: US)
  Receive Date: 20200110
  Receipt Date: 20200110
  Transmission Date: 20200409
  Serious: No
  Sender: FDA-Public Use
  Company Number: None

PATIENT
  Age: 66 Year
  Sex: Female

DRUGS (1)
  1. GAMUNEX [Suspect]
     Active Substance: HUMAN IMMUNOGLOBULIN G
     Indication: CHRONIC INFLAMMATORY DEMYELINATING POLYRADICULONEUROPATHY
     Dosage: ?          OTHER FREQUENCY:ONCE MONTHLY;?
     Dates: start: 20191202, end: 20200102

REACTIONS (4)
  - Rash [None]
  - Pruritus [None]
  - Infusion related reaction [None]
  - Product substitution issue [None]

NARRATIVE: CASE EVENT DATE: 20191202
